FAERS Safety Report 4735606-3 (Version None)
Quarter: 2005Q3

REPORT INFORMATION
  Report Type: 
  Country: None (occurrence: None)
  Receive Date: 20050801
  Receipt Date: 20050801
  Transmission Date: 20060218
  Serious: No
  Sender: FDA-Public Use
  Company Number: None

PATIENT
  Age: 61 Year
  Sex: Male

DRUGS (1)
  1. METHADONE HCL [Suspect]
     Dosage: 80 MG PO X 1
     Route: 048
     Dates: start: 20050308

REACTIONS (2)
  - OXYGEN SATURATION DECREASED [None]
  - SOMNOLENCE [None]
